FAERS Safety Report 5670628-X (Version None)
Quarter: 2008Q1

REPORT INFORMATION
  Report Type: 
  Country: None (occurrence: None)
  Receive Date: 20080313
  Receipt Date: 20080303
  Transmission Date: 20080703
  Serious: Yes (Other)
  Sender: FDA-Public Use
  Company Number: 08H-163-0313969-00

PATIENT
  Age: 53 Year
  Sex: Female

DRUGS (4)
  1. BUPIVACAINE HCL [Suspect]
     Indication: SPINAL ANAESTHESIA
     Dosage: 2.5 ML, NOT REPORTED, INTRASPINAL
  2. DIAMORPHINE (DIAMORPHINE) [Suspect]
     Indication: SPINAL ANAESTHESIA
     Dosage: 300 MCG, NOT REPORTED, INTRASPINAL
  3. ESTRADIOL [Suspect]
     Indication: DRUG USE FOR UNKNOWN INDICATION
  4. DEXAMETHASONE TAB [Suspect]
     Indication: DRUG USE FOR UNKNOWN INDICATION

REACTIONS (1)
  - MYOCLONUS [None]
